FAERS Safety Report 6138826-9 (Version None)
Quarter: 2009Q1

REPORT INFORMATION
  Report Type: 
  Country: None (occurrence: None)
  Receive Date: 20090331
  Receipt Date: 20090325
  Transmission Date: 20090719
  Serious: Yes (Other)
  Sender: FDA-Public Use
  Company Number: DE-ROXANE LABORATORIES, INC.-2009-RO-00287RO

PATIENT
  Age: 35 Year
  Sex: Female

DRUGS (3)
  1. METHOTREXATE [Suspect]
     Indication: ACUTE LYMPHOCYTIC LEUKAEMIA
  2. METHOTREXATE [Suspect]
  3. METHOTREXATE [Suspect]
     Route: 037

REACTIONS (5)
  - CENTRAL NERVOUS SYSTEM INFECTION [None]
  - HYPERBILIRUBINAEMIA [None]
  - LEUKOENCEPHALOPATHY [None]
  - METABOLIC DISORDER [None]
  - NEUROTOXICITY [None]
